FAERS Safety Report 8362244-6 (Version None)
Quarter: 2012Q2

REPORT INFORMATION
  Report Type: 
  Country: None (occurrence: None)
  Receive Date: 20120515
  Receipt Date: 20120508
  Transmission Date: 20120825
  Serious: Yes (Hospitalization, Other)
  Sender: FDA-Public Use
  Company Number: US-BAYER-2012-003038

PATIENT
  Age: 31 Year
  Sex: Female
  Weight: 79.365 kg

DRUGS (7)
  1. PRILOSEC [Concomitant]
     Dosage: 20 MG, UNK
     Route: 048
  2. XANAX [Concomitant]
     Indication: DEPRESSION
  3. SEROQUEL [Concomitant]
     Dosage: 100 MG, UNK
     Route: 048
  4. YAZ [Suspect]
     Dosage: UNK
     Dates: start: 20060101, end: 20090101
  5. EFFEXOR [Concomitant]
  6. VENLAFAXINE HYDROCHLORIDE [Concomitant]
     Dosage: 37.5 MG, UNK
     Route: 048
  7. BUSPAR [Concomitant]
     Indication: ANXIETY

REACTIONS (7)
  - PULMONARY INFARCTION [None]
  - VENA CAVA THROMBOSIS [None]
  - ABORTION [None]
  - PULMONARY EMBOLISM [None]
  - PAIN [None]
  - THROMBOSIS [None]
  - ABORTION INDUCED [None]
